FAERS Safety Report 12617424 (Version 1)
Quarter: 2016Q3

REPORT INFORMATION
  Report Type: Spontaneous
  Country: US (occurrence: None)
  Receive Date: 20160802
  Receipt Date: 20160802
  Transmission Date: 20161109
  Serious: Yes (Disabling, Other)
  Sender: FDA-Public Use
  Company Number: None

PATIENT
  Age: 89 Year
  Sex: Male
  Weight: 68.04 kg

DRUGS (9)
  1. B COMPLEX VITAMIN [Concomitant]
  2. CALCITRIOL. [Concomitant]
     Active Substance: CALCITRIOL
  3. TERAZOSIN [Concomitant]
     Active Substance: TERAZOSIN\TERAZOSIN HYDROCHLORIDE
  4. FISH OIL [Concomitant]
     Active Substance: FISH OIL
  5. VITAMIN B12 [Concomitant]
     Active Substance: CYANOCOBALAMIN
  6. PRESERVISION [Concomitant]
     Active Substance: MINERALS\VITAMINS
  7. LEVOFLOXACIN. [Suspect]
     Active Substance: LEVOFLOXACIN
     Indication: URINARY TRACT INFECTION
     Dosage: 1 TABLET DAILY IV X 2 DAYS IN HOSPITAL BY MOUTH X 5 DAYS
     Route: 048
     Dates: start: 20160606, end: 20160612
  8. AMLODIPINE [Concomitant]
     Active Substance: AMLODIPINE BESYLATE
  9. PRAVASTATIN. [Concomitant]
     Active Substance: PRAVASTATIN

REACTIONS (6)
  - Swelling [None]
  - Immobile [None]
  - Tendonitis [None]
  - Depression [None]
  - Tendon rupture [None]
  - Pain [None]

NARRATIVE: CASE EVENT DATE: 20160611
